FAERS Safety Report 10881118 (Version 1)
Quarter: 2015Q1

REPORT INFORMATION
  Report Type: Spontaneous
  Country: US (occurrence: None)
  Receive Date: 20150225
  Receipt Date: 20150225
  Transmission Date: 20150721
  Serious: Yes (Other)
  Sender: FDA-Public Use
  Company Number: None

PATIENT
  Age: 31 Year
  Sex: Female

DRUGS (1)
  1. FLUPHENAZINE [Suspect]
     Active Substance: FLUPHENAZINE
     Indication: SCHIZOPHRENIA
     Dosage: 1 TABLET
     Route: 048
     Dates: start: 20150222, end: 20150222

REACTIONS (4)
  - Angioedema [None]
  - Dyspnoea [None]
  - Hypersensitivity [None]
  - Oedema [None]

NARRATIVE: CASE EVENT DATE: 20150222
